FAERS Safety Report 5820632-3 (Version None)
Quarter: 2008Q3

REPORT INFORMATION
  Report Type: 
  Country: None (occurrence: None)
  Receive Date: 20080724
  Receipt Date: 20071213
  Transmission Date: 20090109
  Serious: No
  Sender: FDA-Public Use
  Company Number: A0699356A

PATIENT
  Sex: Male

DRUGS (2)
  1. AVANDIA [Suspect]
     Indication: RESTLESS LEGS SYNDROME
     Dosage: 4MG IN THE MORNING
     Route: 048
  2. GLYBURIDE [Suspect]
     Dosage: .625MG PER DAY
     Route: 048

REACTIONS (2)
  - BLOOD GLUCOSE DECREASED [None]
  - OEDEMA PERIPHERAL [None]
